FAERS Safety Report 4442278-4 (Version None)
Quarter: 2004Q3

REPORT INFORMATION
  Report Type: 
  Country: None (occurrence: None)
  Receive Date: 20040903
  Receipt Date: 20040719
  Transmission Date: 20050211
  Serious: Yes (Other)
  Sender: FDA-Public Use
  Company Number: 2004UW15016

PATIENT
  Age: 52 Year
  Sex: Female
  Weight: 104.7809 kg

DRUGS (9)
  1. CRESTOR [Suspect]
     Indication: HYPERCHOLESTEROLAEMIA
     Dosage: 10 MG PO
     Route: 048
     Dates: start: 20040401
  2. NEXIUM [Concomitant]
  3. K+10 [Concomitant]
  4. SYNTHROID [Concomitant]
  5. METFORMIN HCL [Concomitant]
  6. AMARIL VACCINE [Concomitant]
  7. HYDROCHLOROTHIAZIDE [Concomitant]
  8. METOPROLOL [Concomitant]
  9. CATAFLAM [Concomitant]

REACTIONS (3)
  - BLOOD POTASSIUM DECREASED [None]
  - FATIGUE [None]
  - MUSCLE CRAMP [None]
